FAERS Safety Report 7701180-2 (Version None)
Quarter: 2011Q3

REPORT INFORMATION
  Report Type: 
  Country: None (occurrence: None)
  Receive Date: 20110822
  Receipt Date: 20090316
  Transmission Date: 20111222
  Serious: Yes (Other)
  Sender: FDA-Public Use
  Company Number: US-GLAXOSMITHKLINE-A0773592A

PATIENT
  Age: 17 Year
  Sex: Female

DRUGS (6)
  1. LAMOTRIGINE [Suspect]
     Route: 048
     Dates: start: 20081101
  2. SINGULAIR [Concomitant]
  3. ZYRTEC [Concomitant]
  4. LAMICTAL [Suspect]
     Dosage: 150MG UNKNOWN
     Route: 065
  5. LAMICTAL [Suspect]
     Indication: CONVULSION
     Dosage: 150MG TWICE PER DAY
     Route: 048
     Dates: start: 20090101
  6. BACTRIM [Concomitant]

REACTIONS (3)
  - FALL [None]
  - TREMOR [None]
  - CONVULSION [None]
